FAERS Safety Report 15383366 (Version 3)
Quarter: 2021Q4

REPORT INFORMATION
  Report Type: Spontaneous
  Country: PL (occurrence: PL)
  Receive Date: 20180913
  Receipt Date: 20211224
  Transmission Date: 20220303
  Serious: Yes (Hospitalization)
  Sender: FDA-Public Use
  Company Number: PHHY2018PL092428

PATIENT
  Age: 10 Year
  Sex: Female

DRUGS (5)
  1. HYDROCORTISONE [Suspect]
     Active Substance: HYDROCORTISONE
     Indication: Acute haemorrhagic oedema of infancy
     Dosage: UNK
     Route: 061
  2. GENTAMICIN [Suspect]
     Active Substance: GENTAMICIN
     Indication: Acute haemorrhagic oedema of infancy
     Dosage: OINTMENT
     Route: 061
     Dates: start: 201512
  3. AZITHROMYCIN [Suspect]
     Active Substance: AZITHROMYCIN
     Indication: Acute haemorrhagic oedema of infancy
     Dosage: UNK
     Route: 048
     Dates: start: 201512
  4. BETAMETHASONE [Suspect]
     Active Substance: BETAMETHASONE
     Indication: Acute haemorrhagic oedema of infancy
     Dosage: CUTANEOUS SOLUTION
     Route: 061
     Dates: start: 201512
  5. CLOTRIMAZOLE [Suspect]
     Active Substance: CLOTRIMAZOLE
     Indication: Acute haemorrhagic oedema of infancy
     Dosage: OINTMENT, CUTANEOUS SOLUTION
     Route: 061
     Dates: start: 201512

REACTIONS (1)
  - Drug ineffective [Recovered/Resolved]

NARRATIVE: CASE EVENT DATE: 20151201
